FAERS Safety Report 8121911-X (Version None)
Quarter: 2012Q1

REPORT INFORMATION
  Report Type: 
  Country: None (occurrence: None)
  Receive Date: 20120206
  Receipt Date: 20120130
  Transmission Date: 20120608
  Serious: Yes (Other)
  Sender: FDA-Public Use
  Company Number: 2012MA001368

PATIENT
  Age: 45 Year
  Sex: Male

DRUGS (2)
  1. METHADONE HCL [Concomitant]
  2. DESIPRAMINE HYDROCHLORIDE [Suspect]
     Indication: INSOMNIA
     Dosage: 10 MG;HS;PO
     Route: 048

REACTIONS (10)
  - SEROTONIN SYNDROME [None]
  - TREMOR [None]
  - ANXIETY [None]
  - MUSCULOSKELETAL STIFFNESS [None]
  - CONDITION AGGRAVATED [None]
  - INSOMNIA [None]
  - MUSCULAR WEAKNESS [None]
  - HYPERHIDROSIS [None]
  - FATIGUE [None]
  - HYPERTENSION [None]
